FAERS Safety Report 8242799-2 (Version None)
Quarter: 2012Q1

REPORT INFORMATION
  Report Type: 
  Country: None (occurrence: None)
  Receive Date: 20120329
  Receipt Date: 20120315
  Transmission Date: 20120608
  Serious: Yes (Congenital Anomaly)
  Sender: FDA-Public Use
  Company Number: DE-MYLANLABS-2012S1005725

PATIENT
  Age: 0 Year
  Sex: Male
  Weight: 3.34 kg

DRUGS (2)
  1. FOLSAN [Concomitant]
     Indication: PROPHYLAXIS OF NEURAL TUBE DEFECT
     Route: 064
     Dates: start: 20090410, end: 20100106
  2. LAMOTRGINE [Suspect]
     Dosage: 350 [MG/D ]/ GW 0-13: 100 MG/D; GW 13-38.5: 350 MG/D
     Route: 064
     Dates: start: 20090410, end: 20100106

REACTIONS (5)
  - MATERNAL DRUGS AFFECTING FOETUS [None]
  - ATRIAL SEPTAL DEFECT [None]
  - CARDIAC MURMUR [None]
  - VENTRICULAR SEPTAL DEFECT [None]
  - MATERNAL EXPOSURE DURING PREGNANCY [None]
